FAERS Safety Report 6269879-5 (Version None)
Quarter: 2009Q3

REPORT INFORMATION
  Report Type: 
  Country: None (occurrence: None)
  Receive Date: 20090716
  Receipt Date: 20090707
  Transmission Date: 20100115
  Serious: Yes (Other)
  Sender: FDA-Public Use
  Company Number: PHHY2009BR27703

PATIENT
  Sex: Female

DRUGS (2)
  1. PARLODEL [Suspect]
     Indication: PROLACTINOMA
     Dosage: 1 CAPSULE AT NIGHT
     Route: 048
     Dates: end: 20010101
  2. PARLODEL [Suspect]
     Dosage: UNK
     Route: 048

REACTIONS (5)
  - AMENORRHOEA [None]
  - BLOOD PROLACTIN INCREASED [None]
  - HYPOTHYROIDISM [None]
  - THYROID DISORDER [None]
  - WEIGHT INCREASED [None]
